FAERS Safety Report 5158950-7 (Version None)
Quarter: 2006Q4

REPORT INFORMATION
  Report Type: 
  Country: None (occurrence: None)
  Receive Date: 20061128
  Receipt Date: 20061005
  Transmission Date: 20070319
  Serious: Yes (Hospitalization)
  Sender: FDA-Public Use
  Company Number: AT-BRISTOL-MYERS SQUIBB COMPANY-13531413

PATIENT
  Age: 62 Year
  Sex: Female
  Weight: 52 kg

DRUGS (3)
  1. CARBOPLATIN [Suspect]
     Dates: start: 20060622, end: 20060914
  2. GEMCITABINE HCL [Suspect]
     Dates: start: 20060622
  3. NEUPOGEN [Concomitant]
     Dates: start: 20060714

REACTIONS (3)
  - HYPERTENSIVE CRISIS [None]
  - PULMONARY OEDEMA [None]
  - RENAL FAILURE CHRONIC [None]
